FAERS Safety Report 22593291 (Version 1)
Quarter: 2023Q2

REPORT INFORMATION
  Report Type: Spontaneous
  Country: US (occurrence: US)
  Receive Date: 20230613
  Receipt Date: 20230613
  Transmission Date: 20230721
  Serious: Yes (Hospitalization, Other)
  Sender: FDA-Public Use
  Company Number: US-AMGEN-USASP2023099092

PATIENT
  Age: 38 Year
  Sex: Male

DRUGS (2)
  1. RITUXIMAB [Suspect]
     Active Substance: RITUXIMAB
     Indication: Marginal zone lymphoma
     Dosage: UNK (EIGHT DOSES)
     Route: 065
  2. RITUXIMAB [Suspect]
     Active Substance: RITUXIMAB
     Indication: Organising pneumonia

REACTIONS (5)
  - Organising pneumonia [Unknown]
  - Primary immunodeficiency syndrome [Unknown]
  - Superinfection [Unknown]
  - Acute respiratory failure [Unknown]
  - Respiratory tract infection [Unknown]
